FAERS Safety Report 9027937 (Version 1)
Quarter: 2013Q1

REPORT INFORMATION
  Report Type: Spontaneous
  Country: US (occurrence: None)
  Receive Date: 20130114
  Receipt Date: 20130114
  Transmission Date: 20140127
  Serious: Yes (Hospitalization)
  Sender: FDA-Public Use
  Company Number: None

PATIENT
  Age: 27 Year
  Sex: Female
  Weight: 75 kg

DRUGS (3)
  1. CLOZAPINE [Suspect]
     Indication: PSYCHOTIC DISORDER
     Dosage: 225MG HS PO
     Route: 048
     Dates: start: 20121011
  2. CLOZAPINE [Suspect]
     Dosage: 25 MG,QD
     Dates: start: 20121011
  3. LITHIUM [Concomitant]

REACTIONS (3)
  - Rhabdomyolysis [None]
  - Electrocardiogram QT prolonged [None]
  - Bundle branch block right [None]
